FAERS Safety Report 13324639 (Version 1)
Quarter: 2017Q1

REPORT INFORMATION
  Report Type: Report from Study
  Country: None (occurrence: DE)
  Receive Date: 20170310
  Receipt Date: 20170310
  Transmission Date: 20170428
  Serious: Yes (Other)
  Sender: FDA-Public Use
  Company Number: DE-ABBVIE-17P-062-1901547-00

PATIENT
  Sex: Male

DRUGS (1)
  1. DUODOPA [Suspect]
     Active Substance: CARBIDOPA\LEVODOPA
     Indication: PARKINSON^S DISEASE
     Dosage: NOT YET DETERMINED, PATIENT IS IN ADJUSTMENT PHASE
     Route: 050
     Dates: start: 20170303

REACTIONS (2)
  - Acute abdomen [Not Recovered/Not Resolved]
  - Pain [Not Recovered/Not Resolved]
